FAERS Safety Report 4445492-7 (Version None)
Quarter: 2004Q3

REPORT INFORMATION
  Report Type: 
  Country: None (occurrence: None)
  Receive Date: 20040810
  Receipt Date: 20040521
  Transmission Date: 20050211
  Serious: Yes (Other)
  Sender: FDA-Public Use
  Company Number: SUS1-2004-00310

PATIENT
  Age: 17 Year
  Sex: Male

DRUGS (3)
  1. ADDERALL XR (AMPHETAMINE ASPARTATE, AMPHETAMINE SULFATE, DEXTROAMPHETA [Suspect]
     Dosage: 30 MG, 1X/DAY:QD,
  2. ADDERALL XR(DEXTROAMPEHTAMINE SULFATE, DEXTROAMPHETAMINE  SACCHARATE, [Suspect]
     Dosage: 10 MG, 2X/DAY:BID; 10 MG, 1X/DAY:QD,
  3. ADDERALL (AMPHETERAMINE ASPARATATE, AMPHETAMINE SULFATE, DEXTROAMPHETA [Suspect]
     Dosage: 10 MG, 1X/DAY:QD

REACTIONS (1)
  - PSYCHOTIC DISORDER [None]
